FAERS Safety Report 7576748-7 (Version None)
Quarter: 2011Q2

REPORT INFORMATION
  Report Type: 
  Country: None (occurrence: None)
  Receive Date: 20110628
  Receipt Date: 20110617
  Transmission Date: 20111010
  Serious: Yes (Hospitalization)
  Sender: FDA-Public Use
  Company Number: US-BAYER-201036496NA

PATIENT
  Age: 22 Year
  Sex: Female
  Weight: 58.957 kg

DRUGS (6)
  1. YAZ [Suspect]
     Indication: ACNE
     Dosage: UNK
     Route: 048
     Dates: start: 20070701, end: 20100701
  2. ZYRTEC [Concomitant]
     Indication: MULTIPLE ALLERGIES
     Dosage: UNK UNK, QD
     Dates: start: 20040801, end: 20100801
  3. FISH OIL [Concomitant]
     Indication: LAXATIVE SUPPORTIVE CARE
     Dosage: UNK UNK, BID
     Dates: start: 20080901, end: 20090101
  4. PRILOSEC [Concomitant]
     Indication: GASTROOESOPHAGEAL REFLUX DISEASE
     Dosage: UNK UNK, BID
     Dates: start: 20080901, end: 20081001
  5. LEXAPRO [Concomitant]
     Indication: DEPRESSION
     Dosage: 10 MG, QD
     Dates: start: 20070101
  6. PROBIOTICS [Concomitant]
     Indication: LAXATIVE SUPPORTIVE CARE
     Dosage: UNK UNK, BID
     Dates: start: 20080901, end: 20090101

REACTIONS (4)
  - CHOLELITHIASIS [None]
  - CHOLECYSTITIS CHRONIC [None]
  - PAIN [None]
  - BILIARY COLIC [None]
